FAERS Safety Report 7474114-6 (Version None)
Quarter: 2011Q2

REPORT INFORMATION
  Report Type: 
  Country: None (occurrence: None)
  Receive Date: 20110511
  Receipt Date: 20101214
  Transmission Date: 20111010
  Serious: Yes (Hospitalization)
  Sender: FDA-Public Use
  Company Number: DE-GENENTECH-309934

PATIENT
  Sex: Female

DRUGS (4)
  1. LUCENTIS [Suspect]
     Indication: DIABETIC RETINAL OEDEMA
     Route: 031
  2. LUCENTIS [Suspect]
     Dosage: UNK
     Dates: start: 20090723
  3. LUCENTIS [Suspect]
     Dosage: UNK
     Route: 031
     Dates: start: 20100701
  4. LUCENTIS [Suspect]
     Dosage: UNK
     Route: 031
     Dates: start: 20100901

REACTIONS (4)
  - EYE INFECTION [None]
  - HYPERTENSION [None]
  - RENAL DISORDER [None]
  - VISUAL IMPAIRMENT [None]
